FAERS Safety Report 7552447-2 (Version None)
Quarter: 2011Q2

REPORT INFORMATION
  Report Type: 
  Country: None (occurrence: None)
  Receive Date: 20110616
  Receipt Date: 20110606
  Transmission Date: 20111010
  Serious: Yes (Death, Hospitalization)
  Sender: FDA-Public Use
  Company Number: IT-BAXTER-2011BH018795

PATIENT
  Age: 68 Year
  Sex: Male
  Weight: 62 kg

DRUGS (11)
  1. WARFARIN SODIUM [Concomitant]
     Indication: THROMBOSIS
     Route: 065
     Dates: start: 20090101
  2. AMLODIPINE [Concomitant]
     Indication: HYPERTENSION
     Route: 048
     Dates: start: 20090101
  3. CYCLOPHOSPHAMIDE [Suspect]
     Route: 042
     Dates: start: 20110302, end: 20110304
  4. FENTANYL-100 [Suspect]
     Indication: BONE PAIN
     Route: 062
     Dates: start: 20090101
  5. CYCLOPHOSPHAMIDE [Suspect]
     Indication: MULTIPLE MYELOMA
     Route: 042
     Dates: start: 20110406, end: 20110408
  6. DEXAMETHASONE [Suspect]
     Route: 042
     Dates: start: 20110401, end: 20110424
  7. OXYCODONE HCL [Suspect]
     Indication: BONE PAIN
     Route: 048
     Dates: start: 20090101
  8. DEXAMETHASONE [Suspect]
     Route: 042
     Dates: start: 20110302, end: 20110402
  9. ESOMEPRAZOLE MAGNESIUM [Concomitant]
     Indication: PROPHYLAXIS
     Route: 048
     Dates: start: 20090101
  10. CYCLOPHOSPHAMIDE [Suspect]
     Route: 042
     Dates: start: 20110402, end: 20110405
  11. DEXAMETHASONE [Suspect]
     Indication: MULTIPLE MYELOMA
     Route: 042
     Dates: start: 20110402, end: 20110405

REACTIONS (3)
  - DISEASE PROGRESSION [None]
  - STAPHYLOCOCCAL SEPSIS [None]
  - INTESTINAL OBSTRUCTION [None]
